FAERS Safety Report 10668694 (Version 1)
Quarter: 2014Q4

REPORT INFORMATION
  Report Type: Spontaneous
  Country: FR (occurrence: FR)
  Receive Date: 20141222
  Receipt Date: 20141222
  Transmission Date: 20150529
  Serious: Yes (Life-Threatening, Hospitalization)
  Sender: FDA-Public Use
  Company Number: FR-SA-2014SA172463

PATIENT
  Age: 58 Year
  Sex: Male

DRUGS (3)
  1. GAVISCON [Concomitant]
     Active Substance: ALUMINUM HYDROXIDE\MAGNESIUM CARBONATE
  2. LOVENOX [Suspect]
     Active Substance: ENOXAPARIN SODIUM
     Indication: DEEP VEIN THROMBOSIS
     Route: 058
     Dates: start: 20140904, end: 20140907
  3. MOPRAL [Concomitant]
     Active Substance: OMEPRAZOLE SODIUM

REACTIONS (8)
  - Cardiac tamponade [Recovered/Resolved with Sequelae]
  - Aspartate aminotransferase increased [Recovered/Resolved]
  - Pericardial haemorrhage [Recovered/Resolved with Sequelae]
  - Cardiac failure [Recovered/Resolved with Sequelae]
  - Alanine aminotransferase increased [Recovered/Resolved]
  - Chest discomfort [Recovered/Resolved with Sequelae]
  - Acute kidney injury [Recovered/Resolved]
  - Haemoptysis [Recovered/Resolved with Sequelae]

NARRATIVE: CASE EVENT DATE: 20140907
